FAERS Safety Report 8062137-8 (Version None)
Quarter: 2012Q1

REPORT INFORMATION
  Report Type: 
  Country: None (occurrence: None)
  Receive Date: 20120120
  Receipt Date: 20120120
  Transmission Date: 20120608
  Serious: Yes (Hospitalization)
  Sender: FDA-Public Use
  Company Number: None

PATIENT
  Age: 63 Year
  Sex: Male
  Weight: 72.3 kg

DRUGS (3)
  1. GLIPIZIDE [Suspect]
  2. METFORMIN HCL [Suspect]
  3. BYETTA [Suspect]
     Indication: DIABETES MELLITUS
     Dosage: ML BID SQ
     Route: 058
     Dates: start: 20110721, end: 20110917

REACTIONS (7)
  - VOMITING [None]
  - CONSTIPATION [None]
  - FLATULENCE [None]
  - NAUSEA [None]
  - ABDOMINAL PAIN [None]
  - HYPERTENSION [None]
  - PANCREATITIS [None]
